FAERS Safety Report 12718619 (Version 5)
Quarter: 2016Q4

REPORT INFORMATION
  Report Type: Spontaneous
  Country: US (occurrence: US)
  Receive Date: 20160906
  Receipt Date: 20161014
  Transmission Date: 20170207
  Serious: Yes (Hospitalization)
  Sender: FDA-Public Use
  Company Number: US-ACTELION-A-NJ2016-141607

PATIENT
  Age: 57 Year
  Sex: Female

DRUGS (3)
  1. REVATIO [Concomitant]
     Active Substance: SILDENAFIL CITRATE
  2. VELETRI [Suspect]
     Active Substance: EPOPROSTENOL
     Indication: PULMONARY ARTERIAL HYPERTENSION
     Dosage: 72 NG/KG, PER MIN
     Route: 042
     Dates: start: 20120105
  3. COUMADIN [Concomitant]
     Active Substance: WARFARIN SODIUM

REACTIONS (9)
  - Hypotension [Unknown]
  - Dyspnoea [Unknown]
  - Dizziness [Unknown]
  - Fluid retention [Unknown]
  - Cardiac pacemaker insertion [Unknown]
  - Device related infection [Unknown]
  - Vascular graft [Unknown]
  - Atrioventricular block complete [Unknown]
  - Heart rate decreased [Unknown]
